FAERS Safety Report 10342945 (Version 2)
Quarter: 2014Q3

REPORT INFORMATION
  Report Type: Spontaneous
  Country: CH (occurrence: None)
  Receive Date: 20140723
  Receipt Date: 20140806
  Transmission Date: 20150326
  Serious: Yes (Other)
  Sender: FDA-Public Use
  Company Number: 20140414

PATIENT
  Age: 58 Year
  Sex: Female

DRUGS (3)
  1. FERINJECT [Suspect]
     Active Substance: FERRIC CARBOXYMALTOSE
     Indication: HAEMOGLOBIN DECREASED
     Dosage: 1000 MG, 1 IN 1 TOTAL
     Route: 041
     Dates: start: 20140530, end: 20140530
  2. FERROUS FUMARATE [Concomitant]
     Active Substance: FERROUS FUMARATE
  3. FERINJECT [Suspect]
     Active Substance: FERRIC CARBOXYMALTOSE
     Indication: IRON DEFICIENCY ANAEMIA
     Dosage: 1000 MG, 1 IN 1 TOTAL
     Route: 041
     Dates: start: 20140530, end: 20140530

REACTIONS (8)
  - Wrong technique in drug usage process [None]
  - Extravasation [None]
  - Infusion site discolouration [None]
  - Body temperature increased [None]
  - Infusion site pain [None]
  - Pain [None]
  - Limb discomfort [None]
  - Injection site warmth [None]

NARRATIVE: CASE EVENT DATE: 201405
